FAERS Safety Report 21869758 (Version 1)
Quarter: 2023Q1

REPORT INFORMATION
  Report Type: Spontaneous
  Country: US (occurrence: US)
  Receive Date: 20230117
  Receipt Date: 20230117
  Transmission Date: 20230418
  Serious: No
  Sender: FDA-Public Use
  Company Number: US-AUROBINDO-AUR-APL-2022-001056

PATIENT
  Sex: Female

DRUGS (3)
  1. PROGESTERONE [Suspect]
     Active Substance: PROGESTERONE
     Indication: Product used for unknown indication
     Dosage: UNK
     Route: 065
     Dates: start: 20211102
  2. PROGESTERONE [Suspect]
     Active Substance: PROGESTERONE
     Dosage: 10 MILLILITER
     Route: 065
     Dates: start: 20220102
  3. PROGESTERONE [Suspect]
     Active Substance: PROGESTERONE
     Dosage: 10 MILLILITER
     Route: 065
     Dates: start: 20220105

REACTIONS (1)
  - Expired product administered [Unknown]
